FAERS Safety Report 14363842 (Version 5)
Quarter: 2018Q4

REPORT INFORMATION
  Report Type: Spontaneous
  Country: JP (occurrence: JP)
  Receive Date: 20180108
  Receipt Date: 20181011
  Transmission Date: 20190204
  Serious: Yes (Other)
  Sender: FDA-Public Use
  Company Number: JP-PFIZER INC-2018003106

PATIENT
  Age: 69 Year
  Sex: Male

DRUGS (1)
  1. PACLITAXEL. [Suspect]
     Active Substance: PACLITAXEL
     Indication: HYPOPHARYNGEAL CANCER
     Dosage: 80 MG/M2, UNK

REACTIONS (2)
  - Cystoid macular oedema [Recovered/Resolved]
  - Interstitial lung disease [Unknown]
